FAERS Safety Report 7906200 (Version 2)
Quarter: 2014Q3

REPORT INFORMATION
  Report Type: Spontaneous
  Country: CH (occurrence: None)
  Receive Date: 20110329
  Receipt Date: 20140923
  Transmission Date: 20150326
  Serious: Yes (Life-Threatening, Hospitalization, Other)
  Sender: FDA-Public Use
  Company Number: 20110219

PATIENT
  Age: 80 Year
  Sex: Male

DRUGS (9)
  1. VENOFER [Suspect]
     Active Substance: IRON SUCROSE
     Indication: PRODUCT USED FOR UNKNOWN INDICATION
     Dosage: INTRAVENOUS
     Route: 042
     Dates: start: 20110219, end: 20110219
  2. BUMETANIDE. [Concomitant]
     Active Substance: BUMETANIDE
  3. WARFARIN [Concomitant]
     Active Substance: WARFARIN
  4. PARACETAMOL [Concomitant]
     Active Substance: ACETAMINOPHEN
  5. TAMSULOSIN HYDROCHLORIDE. [Concomitant]
     Active Substance: TAMSULOSIN HYDROCHLORIDE
  6. LOSARTAN POTASSIUM. [Concomitant]
     Active Substance: LOSARTAN POTASSIUM
  7. FERINJECT [Suspect]
     Active Substance: FERRIC CARBOXYMALTOSE
     Indication: PRODUCT USED FOR UNKNOWN INDICATION
     Dosage: INTRAVNEOUS
     Route: 042
     Dates: start: 20110219, end: 20110219
  8. CELIPROLOL [Concomitant]
     Active Substance: CELIPROLOL
  9. DIGOXIN. [Concomitant]
     Active Substance: DIGOXIN

REACTIONS (5)
  - Dyspnoea [None]
  - Abdominal pain [None]
  - Chills [None]
  - Electrocardiogram abnormal [None]
  - Troponin increased [None]

NARRATIVE: CASE EVENT DATE: 20110219
